FAERS Safety Report 6598585-2 (Version None)
Quarter: 2010Q1

REPORT INFORMATION
  Report Type: 
  Country: None (occurrence: None)
  Receive Date: 20100224
  Receipt Date: 20100218
  Transmission Date: 20100710
  Serious: Yes (Hospitalization)
  Sender: FDA-Public Use
  Company Number: US-BIOGENIDEC-2009BI031136

PATIENT
  Sex: Female

DRUGS (2)
  1. AVONEX [Suspect]
     Indication: MULTIPLE SCLEROSIS
     Route: 030
     Dates: start: 20010207, end: 20051101
  2. AVONEX [Suspect]
     Route: 030
     Dates: start: 20091118

REACTIONS (2)
  - MULTIPLE SCLEROSIS [None]
  - THYROID CANCER [None]
